FAERS Safety Report 14027188 (Version 3)
Quarter: 2018Q1

REPORT INFORMATION
  Report Type: Spontaneous
  Country: JP (occurrence: JP)
  Receive Date: 20170930
  Receipt Date: 20180102
  Transmission Date: 20180508
  Serious: Yes (Hospitalization, Other)
  Sender: FDA-Public Use
  Company Number: JP-B.I. PHARMACEUTICALS,INC./RIDGEFIELD-2017-NB-003555

PATIENT
  Age: 73 Year
  Sex: Female
  Weight: 35 kg

DRUGS (5)
  1. GILOTRIF [Suspect]
     Active Substance: AFATINIB
     Route: 048
     Dates: start: 20161122
  2. GILOTRIF [Suspect]
     Active Substance: AFATINIB
     Route: 048
     Dates: start: 201705, end: 20170613
  3. GILOTRIF [Suspect]
     Active Substance: AFATINIB
     Indication: LUNG NEOPLASM MALIGNANT
     Route: 048
     Dates: start: 20160712, end: 20160916
  4. GILOTRIF [Suspect]
     Active Substance: AFATINIB
     Route: 048
     Dates: start: 20170123, end: 20170221
  5. GILOTRIF [Suspect]
     Active Substance: AFATINIB
     Route: 048
     Dates: start: 20170306, end: 20170410

REACTIONS (9)
  - Dizziness [Recovered/Resolved]
  - Hepatic encephalopathy [Recovered/Resolved]
  - Decreased appetite [Recovered/Resolved]
  - Feeling abnormal [Unknown]
  - Decreased appetite [Unknown]
  - Incontinence [Unknown]
  - Hepatic encephalopathy [Recovering/Resolving]
  - Depressed level of consciousness [Unknown]
  - Listless [Unknown]

NARRATIVE: CASE EVENT DATE: 20160917
